FAERS Safety Report 9207782 (Version 2)
Quarter: 2013Q4

REPORT INFORMATION
  Report Type: Spontaneous
  Country: US (occurrence: US)
  Receive Date: 20130403
  Receipt Date: 20131203
  Transmission Date: 20140711
  Serious: Yes (Other)
  Sender: FDA-Public Use
  Company Number: US-BAYER-2013-041404

PATIENT
  Age: 38 Year
  Sex: Female

DRUGS (7)
  1. YAZ [Suspect]
     Indication: CONTRACEPTION
     Dosage: UNK
     Dates: start: 200501, end: 200906
  2. YAZ [Suspect]
     Indication: MENSTRUAL CYCLE MANAGEMENT
  3. YASMIN [Suspect]
     Indication: CONTRACEPTION
     Dosage: UNK
     Dates: start: 200501, end: 200906
  4. YASMIN [Suspect]
     Indication: MENSTRUATION IRREGULAR
  5. YASMIN [Suspect]
     Indication: MENSTRUAL CYCLE MANAGEMENT
  6. METHYLIN ER [Concomitant]
     Dosage: 20 MG, UNK
  7. NEXIUM [Concomitant]
     Dosage: 40 MG, UNK

REACTIONS (8)
  - Gallbladder disorder [None]
  - Cholecystitis [None]
  - Injury [None]
  - Anxiety [None]
  - Emotional distress [None]
  - Fear of disease [None]
  - Anhedonia [None]
  - Pain [None]
